FAERS Safety Report 8188147-8 (Version None)
Quarter: 2012Q1

REPORT INFORMATION
  Report Type: 
  Country: None (occurrence: None)
  Receive Date: 20120221
  Receipt Date: 20110927
  Transmission Date: 20120608
  Serious: Yes (Hospitalization)
  Sender: FDA-Public Use
  Company Number: PHEH2011US06423

PATIENT
  Age: 71 Year
  Sex: Female
  Weight: 57.1 kg

DRUGS (3)
  1. TOBI [Suspect]
     Indication: BRONCHIECTASIS
     Dosage: 300 MG BID 14 DAYS ON AND 14 DAYS OFF , INHALATION
     Route: 055
     Dates: start: 20090813
  2. TOBI [Suspect]
     Indication: CONDITION AGGRAVATED
     Dosage: 300 MG BID 14 DAYS ON AND 14 DAYS OFF , INHALATION
     Route: 055
     Dates: start: 20090813
  3. ALPHA-1 PROTEINASE INHIBITOR HUMAN (ALPHA-1-ANTITRYPSIN) [Concomitant]

REACTIONS (1)
  - DYSPNOEA [None]
